FAERS Safety Report 8470514-6 (Version None)
Quarter: 2012Q2

REPORT INFORMATION
  Report Type: 
  Country: None (occurrence: None)
  Receive Date: 20120627
  Receipt Date: 20111212
  Transmission Date: 20120825
  Serious: No
  Sender: FDA-Public Use
  Company Number: US-MYLANLABS-2011S1023392

PATIENT
  Age: 71 Year
  Sex: Male
  Weight: 95.26 kg

DRUGS (3)
  1. ASACOL [Concomitant]
     Dosage: ^LONG TIME^
  2. PERFOROMIST [Suspect]
     Indication: RESPIRATORY DISORDER
     Route: 055
     Dates: start: 20111001, end: 20111104
  3. HYDROCHLOROTHIAZIDE [Concomitant]
     Dosage: ^LONG TIME^

REACTIONS (3)
  - THERMAL BURN [None]
  - ORAL FUNGAL INFECTION [None]
  - ABDOMINAL DISCOMFORT [None]
